FAERS Safety Report 6903725-9 (Version None)
Quarter: 2010Q3

REPORT INFORMATION
  Report Type: 
  Country: None (occurrence: None)
  Receive Date: 20100804
  Receipt Date: 20081120
  Transmission Date: 20110219
  Serious: No
  Sender: FDA-Public Use
  Company Number: US-PFIZER INC-2008098649

PATIENT
  Sex: Female
  Weight: 57.61 kg

DRUGS (3)
  1. LYRICA [Suspect]
     Indication: BACK PAIN
     Dates: start: 20080101
  2. ACETYLSALICYLIC ACID SRT [Concomitant]
  3. VITAMIN TAB [Concomitant]

REACTIONS (3)
  - ALOPECIA [None]
  - CONSTIPATION [None]
  - DRY MOUTH [None]
